FAERS Safety Report 7921030-9 (Version None)
Quarter: 2011Q4

REPORT INFORMATION
  Report Type: 
  Country: None (occurrence: None)
  Receive Date: 20111117
  Receipt Date: 20111111
  Transmission Date: 20120403
  Serious: Yes (Life-Threatening, Hospitalization)
  Sender: FDA-Public Use
  Company Number: SK-PFIZER INC-2007047992

PATIENT
  Age: 75 Year
  Sex: Male
  Weight: 103 kg

DRUGS (13)
  1. CONDROSULF [Concomitant]
     Dates: start: 20050101
  2. SODIUM CHLORIDE [Concomitant]
     Dates: start: 20060914, end: 20060916
  3. DIGOXIN [Concomitant]
     Dates: start: 20051026
  4. DITHIADEN [Concomitant]
     Dates: start: 20060914, end: 20060916
  5. MYOLASTAN [Concomitant]
  6. AGEN [Concomitant]
     Dates: start: 20070502
  7. ANOPYRIN [Concomitant]
     Dates: start: 20070502
  8. FUROSEMIDE [Concomitant]
     Dates: start: 20070502
  9. AUGMENTIN [Concomitant]
     Dates: start: 20060220, end: 20060224
  10. DEXAMETHASONE [Concomitant]
     Dates: start: 20060914, end: 20060916
  11. MELOXICAM [Concomitant]
  12. RAMIPRIL [Concomitant]
     Dates: start: 20070502
  13. SUNITINIB MALATE [Suspect]
     Indication: RENAL CANCER
     Dosage: 37.5 MG, 1X/DAY
     Route: 048
     Dates: start: 20060127, end: 20070423

REACTIONS (1)
  - AORTIC ANEURYSM [None]
